FAERS Safety Report 10121353 (Version 1)
Quarter: 2014Q2

REPORT INFORMATION
  Report Type: Spontaneous
  Country: US (occurrence: US)
  Receive Date: 20140425
  Receipt Date: 20140425
  Transmission Date: 20141212
  Serious: Yes (Other)
  Sender: FDA-Public Use
  Company Number: US-JNJFOC-20140413826

PATIENT
  Age: 48 Year
  Sex: Female
  Weight: 125 kg

DRUGS (14)
  1. RIVAROXABAN [Suspect]
     Indication: CEREBROVASCULAR ACCIDENT PROPHYLAXIS
     Route: 048
  2. RIVAROXABAN [Suspect]
     Indication: ATRIAL FIBRILLATION
     Route: 048
  3. POTASSIUM CHLORIDE [Concomitant]
     Route: 065
  4. HEPARIN [Concomitant]
     Route: 065
  5. HYDROMORPHONE [Concomitant]
     Route: 065
  6. XALATAN [Concomitant]
     Route: 065
  7. MAGNESIUM OXIDE [Concomitant]
     Route: 065
  8. METOPROLOL [Concomitant]
     Route: 065
  9. PERCOCET [Concomitant]
     Route: 065
  10. DIGOXIN [Concomitant]
     Route: 065
  11. XANAX [Concomitant]
     Route: 065
  12. DILTIAZEM [Concomitant]
     Route: 065
  13. FLONASE [Concomitant]
     Route: 065
  14. LASIX [Concomitant]
     Route: 048

REACTIONS (2)
  - Arthralgia [Unknown]
  - Joint effusion [Unknown]
